FAERS Safety Report 5507210-0 (Version None)
Quarter: 2007Q4

REPORT INFORMATION
  Report Type: 
  Country: None (occurrence: None)
  Receive Date: 20071102
  Receipt Date: 20071023
  Transmission Date: 20080405
  Serious: Yes (Other)
  Sender: FDA-Public Use
  Company Number: 2007SP021814

PATIENT
  Age: 73 Year
  Sex: Female

DRUGS (9)
  1. CLARITIN [Suspect]
     Indication: POSTNASAL DRIP
     Dosage: ; QD; PO
     Route: 048
     Dates: start: 20071019, end: 20071022
  2. WARFARIN SODIUM [Concomitant]
  3. POTASSIUM CHLORIDE [Concomitant]
  4. LASIX [Concomitant]
  5. ATENOLOL [Concomitant]
  6. DIGOXIN [Concomitant]
  7. IRON [Concomitant]
  8. LIPITOR [Concomitant]
  9. SYNTHROID [Concomitant]

REACTIONS (1)
  - DRUG LEVEL DECREASED [None]
